FAERS Safety Report 22202585 (Version 2)
Quarter: 2023Q2

REPORT INFORMATION
  Report Type: Spontaneous
  Country: US (occurrence: US)
  Receive Date: 20230412
  Receipt Date: 20230427
  Transmission Date: 20230722
  Serious: No
  Sender: FDA-Public Use
  Company Number: US-BAYER-2023A042463

PATIENT
  Age: 47 Year
  Sex: Female

DRUGS (2)
  1. MIRENA [Suspect]
     Active Substance: LEVONORGESTREL
     Indication: Contraception
     Dosage: 20?G/DAY
     Route: 015
     Dates: start: 20220726, end: 20230130
  2. MIRENA [Suspect]
     Active Substance: LEVONORGESTREL
     Indication: Genital haemorrhage

REACTIONS (3)
  - Device dislocation [Recovered/Resolved]
  - Device defective [None]
  - Adverse reaction [None]

NARRATIVE: CASE EVENT DATE: 20230130
